FAERS Safety Report 18334245 (Version 1)
Quarter: 2020Q4

REPORT INFORMATION
  Report Type: Report from Study
  Country: US (occurrence: US)
  Receive Date: 20201001
  Receipt Date: 20201001
  Transmission Date: 20210113
  Serious: Yes (Hospitalization)
  Sender: FDA-Public Use
  Company Number: US-EISAI MEDICAL RESEARCH-EC-2020-078151

PATIENT
  Age: 43 Year
  Sex: Female

DRUGS (2)
  1. LENVIMA [Suspect]
     Active Substance: LENVATINIB
     Indication: ENDOMETRIAL CANCER
     Route: 048
     Dates: start: 20200714, end: 202008
  2. LENVIMA [Suspect]
     Active Substance: LENVATINIB
     Route: 048
     Dates: start: 20200901

REACTIONS (11)
  - Oral pain [Unknown]
  - Diarrhoea [Unknown]
  - Headache [Unknown]
  - Blood pressure increased [Unknown]
  - Vaginal ulceration [Unknown]
  - Enterocolitis [Unknown]
  - Fungal infection [Unknown]
  - Nausea [Unknown]
  - Protein urine present [Unknown]
  - Vomiting [Unknown]
  - Heart rate increased [Unknown]

NARRATIVE: CASE EVENT DATE: 202007
